FAERS Safety Report 4848561-2 (Version None)
Quarter: 2005Q4

REPORT INFORMATION
  Report Type: 
  Country: None (occurrence: None)
  Receive Date: 20051206
  Receipt Date: 20051114
  Transmission Date: 20060501
  Serious: Yes (Other)
  Sender: FDA-Public Use
  Company Number: US200511001228

PATIENT
  Sex: Female

DRUGS (3)
  1. FORTEO [Suspect]
     Dosage: 20 UG
  2. FORTEO PEN (FORTEO PEN) [Concomitant]
  3. PEN, DISPOSABLE [Concomitant]

REACTIONS (1)
  - BONE DISORDER [None]
